FAERS Safety Report 7354810-1 (Version None)
Quarter: 2011Q1

REPORT INFORMATION
  Report Type: 
  Country: None (occurrence: None)
  Receive Date: 20110316
  Receipt Date: 20100217
  Transmission Date: 20110831
  Serious: No
  Sender: FDA-Public Use
  Company Number: US-KINGPHARMUSA00001-K201000183

PATIENT
  Sex: Female
  Weight: 72.562 kg

DRUGS (8)
  1. LASIX [Concomitant]
     Indication: OEDEMA PERIPHERAL
     Dosage: 40 MG, QD
     Route: 048
  2. LASIX [Concomitant]
     Indication: DYSPNOEA
  3. NEXIUM [Concomitant]
     Indication: BARRETT'S OESOPHAGUS
     Dosage: 40 MG, BID
     Route: 048
  4. GLYBURIDE [Concomitant]
     Indication: DIABETES MELLITUS
     Dosage: UNK
     Route: 048
  5. ALTACE [Suspect]
     Indication: HYPERTENSION
     Dosage: 5 MG, QD OR BID, (VARIES)
     Route: 048
  6. ASPIRIN [Concomitant]
     Dosage: 81 MG, QD
     Route: 048
  7. COENZYME Q10 [Concomitant]
     Indication: PROPHYLAXIS
     Dosage: UNK
     Route: 048
  8. SYNTHROID [Concomitant]
     Indication: HYPOTHYROIDISM
     Dosage: 75 MCG, QD
     Route: 048

REACTIONS (2)
  - BLOOD PRESSURE INCREASED [None]
  - DRUG INEFFECTIVE [None]
